FAERS Safety Report 12421201 (Version 2)
Quarter: 2016Q2

REPORT INFORMATION
  Report Type: Spontaneous
  Country: BR (occurrence: BR)
  Receive Date: 20160531
  Receipt Date: 20160629
  Transmission Date: 20160815
  Serious: Yes (Hospitalization, Other)
  Sender: FDA-Public Use
  Company Number: BR-JNJFOC-20160524193

PATIENT
  Age: 24 Year
  Sex: Male

DRUGS (4)
  1. OLANZAPINE. [Suspect]
     Active Substance: OLANZAPINE
     Indication: PSYCHOTIC DISORDER
     Route: 065
  2. CLONAZEPAM. [Suspect]
     Active Substance: CLONAZEPAM
     Indication: PSYCHOTIC DISORDER
     Dosage: AT NIGHT
     Route: 065
  3. RISPERIDONE. [Suspect]
     Active Substance: RISPERIDONE
     Indication: PSYCHOTIC DISORDER
     Dosage: AT NIGHT
     Route: 065
  4. RISPERIDONE. [Suspect]
     Active Substance: RISPERIDONE
     Indication: PSYCHOTIC DISORDER
     Dosage: AT NIGHT
     Route: 065

REACTIONS (18)
  - Restlessness [Unknown]
  - Drug abuse [Unknown]
  - Irritability [Unknown]
  - Aspartate aminotransferase increased [Unknown]
  - Psychotic disorder [Recovered/Resolved]
  - Blood prolactin increased [Unknown]
  - Oedema peripheral [Unknown]
  - Somnolence [Unknown]
  - Blood cholesterol increased [Unknown]
  - Headache [Unknown]
  - Blood triglycerides increased [Unknown]
  - Psychomotor hyperactivity [Unknown]
  - Treatment noncompliance [Unknown]
  - Hyperphagia [Unknown]
  - Insomnia [Unknown]
  - Gamma-glutamyltransferase increased [Unknown]
  - Red blood cell count increased [Unknown]
  - Alanine aminotransferase increased [Unknown]
